FAERS Safety Report 7133449-7 (Version None)
Quarter: 2010Q4

REPORT INFORMATION
  Report Type: 
  Country: None (occurrence: None)
  Receive Date: 20101202
  Receipt Date: 20101124
  Transmission Date: 20110411
  Serious: Yes (Other)
  Sender: FDA-Public Use
  Company Number: US-MYLANLABS-2010S1020380

PATIENT
  Age: 70 Year
  Sex: Female
  Weight: 68.95 kg

DRUGS (2)
  1. PERFOROMIST [Suspect]
     Indication: CHRONIC OBSTRUCTIVE PULMONARY DISEASE
     Route: 055
     Dates: start: 20100701, end: 20101001
  2. WARFARIN [Concomitant]

REACTIONS (3)
  - CONVULSION [None]
  - DIPLEGIA [None]
  - TREMOR [None]
